FAERS Safety Report 8500321-7 (Version None)
Quarter: 2012Q3

REPORT INFORMATION
  Report Type: 
  Country: None (occurrence: None)
  Receive Date: 20120710
  Receipt Date: 20120706
  Transmission Date: 20120928
  Serious: Yes (Other)
  Sender: FDA-Public Use
  Company Number: JP-PFIZER INC-2012148082

PATIENT
  Age: 5 Year
  Sex: Male

DRUGS (11)
  1. DEXAMETHASONE SODIUM PHOSPHATE [Suspect]
     Indication: BURKITT'S LEUKAEMIA
     Dosage: 10 MG/M2, UNK
  2. PREDNISOLONE [Suspect]
     Dosage: 60 MG/M2, UNK
  3. PREDNISOLONE [Suspect]
     Indication: BURKITT'S LEUKAEMIA
     Dosage: 30 MG/M2, UNK
  4. VINCRISTINE SULFATE [Suspect]
     Dosage: 1.5 MG/M2, UNK
  5. CYCLOPHOSPHAMIDE [Suspect]
     Dosage: 250 MG/M2, UNK
  6. OMNIPAQUE 140 [Suspect]
     Dosage: UNK
  7. METHOTREXATE SODIUM [Suspect]
     Indication: BURKITT'S LEUKAEMIA
     Dosage: 5G/M2
  8. VINCRISTINE SULFATE [Suspect]
     Indication: BURKITT'S LEUKAEMIA
     Dosage: 1 MG/M2, UNK
  9. PIRARUBICIN [Suspect]
     Indication: BURKITT'S LEUKAEMIA
     Dosage: 30 MG/M2, UNK
  10. CYCLOPHOSPHAMIDE [Suspect]
     Indication: BURKITT'S LEUKAEMIA
     Dosage: 150 MG/M2, UNK
  11. MANITOL [Concomitant]
     Dosage: 5ML/KG, 3 TIMES/DAY

REACTIONS (3)
  - GASTRITIS HAEMORRHAGIC [None]
  - FEBRILE NEUTROPENIA [None]
  - STOMATITIS [None]
